FAERS Safety Report 9570807 (Version 1)
Quarter: 2013Q4

REPORT INFORMATION
  Report Type: Spontaneous
  Country: GB (occurrence: GB)
  Receive Date: 20131001
  Receipt Date: 20131001
  Transmission Date: 20140711
  Serious: Yes (Disabling)
  Sender: FDA-Public Use
  Company Number: GB-AMGEN-GBRSP2013067383

PATIENT
  Age: 73 Year
  Sex: Female

DRUGS (5)
  1. PROLIA [Suspect]
     Indication: OSTEOPOROSIS
     Dosage: 60 MG, UNK
     Route: 058
  2. ADCAL D3 [Concomitant]
  3. CO-CARELDOPA [Concomitant]
  4. FYBOGEL [Concomitant]
  5. LAXIDO                             /06401201/ [Concomitant]

REACTIONS (1)
  - Ilium fracture [Recovering/Resolving]
